FAERS Safety Report 5421866-2 (Version None)
Quarter: 2007Q3

REPORT INFORMATION
  Report Type: 
  Country: None (occurrence: None)
  Receive Date: 20070817
  Receipt Date: 20070814
  Transmission Date: 20080115
  Serious: Yes (Death)
  Sender: FDA-Public Use
  Company Number: 2007-02770

PATIENT
  Age: 80 Year
  Sex: Female
  Weight: 62 kg

DRUGS (3)
  1. VELCADE [Suspect]
     Indication: MULTIPLE MYELOMA
     Dosage: 2.00 MG, INTRAVENOUS
     Route: 042
     Dates: start: 20070723, end: 20070724
  2. THALIDOMIDE [Suspect]
     Indication: MULTIPLE MYELOMA
     Dosage: 50.00 MG, ORAL
     Route: 048
     Dates: start: 20070723, end: 20070727
  3. MELPHALAN (MELPHALAN) VIAL [Suspect]
     Indication: MULTIPLE MYELOMA
     Dosage: 14.00 MG, ORAL
     Route: 048
     Dates: start: 20070723, end: 20070726

REACTIONS (2)
  - ACUTE ABDOMEN [None]
  - COLITIS ISCHAEMIC [None]
